FAERS Safety Report 11862104 (Version 2)
Quarter: 2016Q1

REPORT INFORMATION
  Report Type: Spontaneous
  Country: US (occurrence: US)
  Receive Date: 20151222
  Receipt Date: 20160325
  Transmission Date: 20160526
  Serious: Yes (Other)
  Sender: FDA-Public Use
  Company Number: US-BIOMARINAP-US-2015-108385

PATIENT
  Sex: Female
  Weight: 28.4 kg

DRUGS (1)
  1. VIMIZIM [Suspect]
     Active Substance: ELOSULFASE ALFA
     Indication: MUCOPOLYSACCHARIDOSIS IV
     Dosage: UNK, QW
     Route: 042
     Dates: start: 20141126

REACTIONS (4)
  - Aggression [Unknown]
  - Inappropriate affect [Unknown]
  - Antisocial behaviour [Unknown]
  - Homicidal ideation [Unknown]
